FAERS Safety Report 8578313-1 (Version None)
Quarter: 2012Q3

REPORT INFORMATION
  Report Type: 
  Country: None (occurrence: None)
  Receive Date: 20120808
  Receipt Date: 20120731
  Transmission Date: 20120928
  Serious: Yes (Hospitalization, Other)
  Sender: FDA-Public Use
  Company Number: IR-JNJFOC-20120800892

PATIENT
  Age: 46 Year
  Sex: Male

DRUGS (2)
  1. NEUPOGEN [Suspect]
     Indication: HAIRY CELL LEUKAEMIA
     Route: 065
  2. CLADRIBINE [Suspect]
     Indication: HAIRY CELL LEUKAEMIA
     Dosage: CONTINOUS INTRAVENOUS INFUSION OVER 7 DAYS
     Route: 042

REACTIONS (3)
  - MENINGITIS TUBERCULOUS [None]
  - DISSEMINATED TUBERCULOSIS [None]
  - PNEUMONIA [None]
